FAERS Safety Report 6399138-1 (Version None)
Quarter: 2009Q4

REPORT INFORMATION
  Report Type: 
  Country: None (occurrence: None)
  Receive Date: 20091008
  Receipt Date: 20090929
  Transmission Date: 20100525
  Serious: No
  Sender: FDA-Public Use
  Company Number: SPI200900325

PATIENT
  Age: 52 Year
  Sex: Female
  Weight: 48.5 kg

DRUGS (7)
  1. AMITIZA [Suspect]
     Indication: IRRITABLE BOWEL SYNDROME
     Dosage: 8 MCG, BID, ORAL; 8MCG, QD, ORAL
     Route: 048
     Dates: start: 20090801, end: 20090801
  2. AMITIZA [Suspect]
     Indication: IRRITABLE BOWEL SYNDROME
     Dosage: 8 MCG, BID, ORAL; 8MCG, QD, ORAL
     Route: 048
     Dates: start: 20090801
  3. ACEBUTOLOL [Concomitant]
  4. VITAMIN E (TOCOPHERYL ACETATE) [Concomitant]
  5. VITAMIN D [Concomitant]
  6. ASPIRIN [Concomitant]
  7. COLACE (DOCUSATE SODIUM) [Concomitant]

REACTIONS (4)
  - CHEST DISCOMFORT [None]
  - CHEST PAIN [None]
  - DRUG INEFFECTIVE [None]
  - UNDERDOSE [None]
